FAERS Safety Report 4478246-6 (Version None)
Quarter: 2004Q4

REPORT INFORMATION
  Report Type: 
  Country: None (occurrence: None)
  Receive Date: 20041014
  Receipt Date: 20040928
  Transmission Date: 20050328
  Serious: Yes (Hospitalization)
  Sender: FDA-Public Use
  Company Number: 2004210337DE

PATIENT
  Age: 62 Year
  Sex: Female
  Weight: 55 kg

DRUGS (5)
  1. CELEBREX [Suspect]
     Indication: COLORECTAL CANCER METASTATIC
     Dosage: 200 MG, ORAL
     Route: 048
     Dates: start: 20040415
  2. CAMPTOSAR [Suspect]
     Indication: COLORECTAL CANCER METASTATIC
     Dosage: 402 MG, IV
     Route: 042
     Dates: start: 20040415
  3. COMPARATOR-CAPECITABINE (CAPECITABAINE) TABLET [Suspect]
     Indication: COLORECTAL CANCER METASTATIC
     Dosage: 1500 MG, ORAL
     Route: 048
     Dates: start: 20040415
  4. PREDNISOLONE [Concomitant]
  5. OMEPRAZOLE [Concomitant]

REACTIONS (1)
  - CEREBRAL INFARCTION [None]
